FAERS Safety Report 11876664 (Version 1)
Quarter: 2015Q4

REPORT INFORMATION
  Report Type: Spontaneous
  Country: BR (occurrence: BR)
  Receive Date: 20151229
  Receipt Date: 20151229
  Transmission Date: 20160305
  Serious: Yes (Hospitalization)
  Sender: FDA-Public Use
  Company Number: BR-CONCORDIA PHARMACEUTICALS INC.-CO-DT-BR-2015-009

PATIENT
  Sex: Female
  Weight: 67 kg

DRUGS (8)
  1. NEXIUM [Suspect]
     Active Substance: ESOMEPRAZOLE MAGNESIUM
     Route: 048
     Dates: start: 201509
  2. LABEL [Concomitant]
     Indication: GASTRIC HAEMORRHAGE
     Route: 048
     Dates: start: 201504
  3. DUTOPROL [Suspect]
     Active Substance: HYDROCHLOROTHIAZIDE\METOPROLOL SUCCINATE
     Indication: HYPERTENSION
     Dosage: EVERY DAY
     Route: 048
  4. NEXIUM [Suspect]
     Active Substance: ESOMEPRAZOLE MAGNESIUM
     Indication: GASTRIC HAEMORRHAGE
     Route: 048
     Dates: start: 201504, end: 201509
  5. SELOZOK [Suspect]
     Active Substance: METOPROLOL SUCCINATE
     Indication: HYPERTENSION
     Route: 048
  6. NORIPURUM [Concomitant]
     Active Substance: IRON POLYMALTOSE
     Indication: GASTRIC HAEMORRHAGE
     Dosage: EVERY DAY
     Route: 048
     Dates: start: 201504
  7. VITAMINS W/AMINO ACIDS [Concomitant]
     Indication: GASTRIC HAEMORRHAGE
     Dosage: EVERY DAY
     Route: 048
     Dates: start: 201504
  8. HYDROCHLOROTHIAZIDE. [Suspect]
     Active Substance: HYDROCHLOROTHIAZIDE
     Indication: HYPERTENSION
     Route: 048

REACTIONS (6)
  - Swelling [None]
  - Blood pressure increased [None]
  - Gastric polyps [None]
  - Gastric haemorrhage [None]
  - Blood iron decreased [None]
  - Drug ineffective [None]
